FAERS Safety Report 7878789-9 (Version None)
Quarter: 2011Q4

REPORT INFORMATION
  Report Type: 
  Country: None (occurrence: None)
  Receive Date: 20111101
  Receipt Date: 20111028
  Transmission Date: 20120403
  Serious: Yes (Hospitalization, Other)
  Sender: FDA-Public Use
  Company Number: CO-BAYER-2011-104960

PATIENT
  Age: 48 Year
  Sex: Female

DRUGS (1)
  1. ANGELIQ [Suspect]
     Dosage: UNK
     Dates: start: 20110201

REACTIONS (3)
  - DYSPNOEA [None]
  - CHEST PAIN [None]
  - HAEMOPTYSIS [None]
